FAERS Safety Report 6021662-1 (Version None)
Quarter: 2008Q4

REPORT INFORMATION
  Report Type: 
  Country: None (occurrence: None)
  Receive Date: 20081222
  Receipt Date: 20081211
  Transmission Date: 20090506
  Serious: Yes (Death, Hospitalization)
  Sender: FDA-Public Use
  Company Number: CHNY2008DE04477

PATIENT
  Age: 75 Year
  Sex: Male

DRUGS (42)
  1. FENISTIL (NCH) (DIMETINDENE MALEATE) UNKNOWN [Suspect]
     Indication: PRURITUS
     Dosage: 1 DF, TID, ORAL
     Route: 048
     Dates: start: 20060611, end: 20060624
  2. FENISTIL (NCH) (DIMETINDENE MALEATE) UNKNOWN [Suspect]
     Indication: PRURITUS
     Dosage: 1 DF, TID, ORAL
     Route: 048
     Dates: start: 20060707
  3. FENISTIL (NCH) (DIMETINDENE MALEATE) GEL [Suspect]
     Indication: PRURITUS
     Dosage: TOPICAL
     Route: 061
     Dates: start: 20060701, end: 20060701
  4. BISOHEXAL (NGX) (BISOPROLOL) UNKNOWN [Suspect]
     Indication: HYPERTENSION
     Dosage: 2.5 MG, QD, ORAL
     Route: 048
     Dates: start: 20060516
  5. ALLOPURINOL [Suspect]
     Indication: HYPERURICAEMIA
     Dosage: 300 MG, QD, ORAL; 100 MG, QD, ORAL
     Route: 048
     Dates: end: 20060708
  6. ALLOPURINOL [Suspect]
     Indication: HYPERURICAEMIA
     Dosage: 300 MG, QD, ORAL; 100 MG, QD, ORAL
     Route: 048
     Dates: start: 20060317
  7. PIPERACILLIN [Suspect]
     Indication: INFECTION PROPHYLAXIS
     Dosage: 4 MG, BID, INTRAVENOUS
     Route: 042
     Dates: start: 20060623, end: 20060623
  8. CEFUROXIME [Suspect]
     Indication: WOUND INFECTION
     Dosage: 1.5 G, TID, INTRAVENOUS
     Route: 042
     Dates: start: 20060624, end: 20060625
  9. CEFUROXIME [Suspect]
     Indication: WOUND INFECTION
     Dosage: 500 MG, TID, ORAL
     Route: 048
     Dates: start: 20060626, end: 20060630
  10. PREDNISOLONE [Suspect]
     Indication: CHRONIC OBSTRUCTIVE PULMONARY DISEASE
     Dosage: 7.5 MG, QD, ORAL; 100 MG, INTRAVENOUS
     Dates: start: 20060623, end: 20060623
  11. PREDNISOLONE [Suspect]
     Indication: CHRONIC OBSTRUCTIVE PULMONARY DISEASE
     Dosage: 7.5 MG, QD, ORAL; 100 MG, INTRAVENOUS
     Dates: start: 20050414
  12. ZOPICLONE (NGX) (ZOPICLONE) UNKNOWN [Suspect]
     Indication: INITIAL INSOMNIA
     Dosage: 7.5 MG, QD, ORAL
     Route: 048
     Dates: start: 20060702, end: 20060702
  13. HEPARIN SODIUM [Suspect]
     Indication: THROMBOSIS PROPHYLAXIS
     Dosage: 3 X 5000 IE, SUBCUTANEOUS
     Route: 058
     Dates: start: 20060519, end: 20060612
  14. METRONIDAZOLE [Suspect]
     Indication: WOUND INFECTION
     Dosage: 0.5 G, BID, INTRAVENOUS
     Route: 042
     Dates: start: 20060625, end: 20060625
  15. DIGITOXIN INJ [Suspect]
     Indication: ATRIAL FIBRILLATION
     Dosage: 0.07 MG, QD, ORAL
     Route: 048
     Dates: start: 20060519
  16. NITROGLYCERIN [Suspect]
     Indication: HYPERTENSION
     Dosage: 2 DF, QD, ORAL
     Route: 048
     Dates: start: 20060623, end: 20060623
  17. ZOLPIDEM [Suspect]
     Indication: INITIAL INSOMNIA
     Dosage: 1 DF, QD, ORAL
     Route: 048
     Dates: start: 20060610, end: 20060611
  18. ZOLPIDEM [Suspect]
     Indication: INITIAL INSOMNIA
     Dosage: 1 DF, QD, ORAL
     Route: 048
     Dates: start: 20060614, end: 20060618
  19. ZOLPIDEM [Suspect]
     Indication: INITIAL INSOMNIA
     Dosage: 1 DF, QD, ORAL
     Route: 048
     Dates: start: 20060620, end: 20060626
  20. ZOLPIDEM [Suspect]
     Indication: INITIAL INSOMNIA
     Dosage: 1 DF, QD, ORAL
     Route: 048
     Dates: start: 20060628, end: 20060701
  21. ZOLPIDEM [Suspect]
     Indication: INITIAL INSOMNIA
     Dosage: 1 DF, QD, ORAL
     Route: 048
     Dates: start: 20060703, end: 20060707
  22. NORVASC [Suspect]
     Indication: HYPERTENSION
     Dosage: 5 M, QD, ORAL
     Route: 048
     Dates: start: 20060524
  23. FOSINOPRIL SODIUM [Suspect]
     Indication: HYPERTENSION
     Dosage: 10 MG, QD, ORAL
     Route: 048
     Dates: start: 20060519
  24. THEOPHYLLINE [Suspect]
     Indication: CHRONIC OBSTRUCTIVE PULMONARY DISEASE
     Dosage: 125 MG, BID, ORAL; 200 MG, ONCE/SINGLE, ORAL; 125 MG, BID, ORAL
     Route: 048
     Dates: start: 20060610, end: 20060622
  25. THEOPHYLLINE [Suspect]
     Indication: CHRONIC OBSTRUCTIVE PULMONARY DISEASE
     Dosage: 125 MG, BID, ORAL; 200 MG, ONCE/SINGLE, ORAL; 125 MG, BID, ORAL
     Route: 048
     Dates: start: 20060623, end: 20060623
  26. THEOPHYLLINE [Suspect]
     Indication: CHRONIC OBSTRUCTIVE PULMONARY DISEASE
     Dosage: 125 MG, BID, ORAL; 200 MG, ONCE/SINGLE, ORAL; 125 MG, BID, ORAL
     Route: 048
     Dates: start: 20060624
  27. TORSEMIDE [Suspect]
     Indication: RENAL FAILURE
     Dosage: 1 DOSE FOR 20 MG AND 1 DOSE OF 10 MG, DAILY, ORAL
     Route: 048
     Dates: start: 20050320
  28. NEXIUM [Suspect]
     Indication: PROPHYLAXIS
     Dosage: 20 MG, QD, ORAL
     Route: 048
     Dates: start: 20050131
  29. AMPICILLIN AND SULBACTAM [Suspect]
     Indication: WOUND INFECTION
     Dosage: 1 DF, BID, ORAL
     Route: 048
     Dates: start: 20060611, end: 20060624
  30. PLAVIX [Suspect]
     Indication: THROMBOSIS PROPHYLAXIS
     Dosage: 2 DF, QD, ORAL
     Route: 048
     Dates: start: 20060612
  31. STEROFUNDIN (ELECTROLYTES NOS) [Suspect]
     Dosage: INTRAVENOUS
     Route: 042
     Dates: start: 20060616, end: 20060617
  32. PERENTEROL/GFR/ (SACCHAROMYCES BOULARDII) [Suspect]
     Indication: DIARRHOEA
     Dosage: 2 DF, TID, ORAL
     Route: 048
     Dates: start: 20060617, end: 20060617
  33. THOMAPYRIN (ACETYLSALICYLIC ACID, CAFFEINE, PHENACETIN) [Suspect]
     Indication: PAIN
     Dosage: 1 DF, QD, ORAL
     Route: 048
     Dates: start: 20060622, end: 20060622
  34. LASIX [Suspect]
     Indication: POLYURIA
     Dosage: 2 AMPOULES, INTRAVENOUS
     Route: 042
     Dates: start: 20060623, end: 20060623
  35. MIDAZOLAM HYDROCHLORIDE [Suspect]
     Indication: PERIOPERATIVE ANALGESIA
     Dosage: 2 MG, INTRAVENOUS
     Route: 042
     Dates: start: 20060623, end: 20060623
  36. LOCAL ANAESTHETICS (LOCAL ANAESTHETICS) [Suspect]
     Indication: ANALGESIA
     Dosage: 1 DF, QD, SUBCUTANEOUS
     Route: 058
     Dates: start: 20060623, end: 20060623
  37. GENTACOLL (GENTAMICIN SULFATE) [Suspect]
     Indication: INFECTION PROPHYLAXIS
     Dosage: TOPICAL
     Route: 061
     Dates: start: 20060623, end: 20060623
  38. ENOXAPARIN SODIUM [Suspect]
     Indication: THROMBOSIS PROPHYLAXIS
     Dosage: 0.6 ML, SUBCUTANEOUS; 0.4 ML, SUBCUTANEOUS
     Route: 058
     Dates: start: 20060623
  39. VAGIMID (METRONIDAZOLE) [Suspect]
     Indication: WOUND INFECTION
     Dosage: 500 MG, TID, ORAL
     Route: 048
     Dates: start: 20060625, end: 20060630
  40. GLYCEROL 2.6% [Suspect]
     Indication: ORAL DISORDER
     Dosage: 1 DF, TID, TOPICAL
     Route: 061
     Dates: start: 20060706, end: 20060706
  41. AMPHO-MORONAL (AMPHOTERICIN B) [Suspect]
     Indication: ORAL DISORDER
     Dosage: 1 DF, TID, ORAL
     Route: 048
     Dates: start: 20060707
  42. LINOLA-FETT N (9, 11-LINOLEIC ACID, LINOLEIC ACID) [Suspect]
     Indication: XEROSIS
     Dosage: TOPICAL
     Route: 061
     Dates: start: 20060707

REACTIONS (4)
  - DRY SKIN [None]
  - MULTI-ORGAN FAILURE [None]
  - SEPSIS [None]
  - STEVENS-JOHNSON SYNDROME [None]
